FAERS Safety Report 23209915 (Version 2)
Quarter: 2024Q1

REPORT INFORMATION
  Report Type: Spontaneous
  Country: US (occurrence: US)
  Receive Date: 20231121
  Receipt Date: 20240304
  Transmission Date: 20240409
  Serious: No
  Sender: FDA-Public Use
  Company Number: US-Calliditas-2023CAL01448

PATIENT
  Age: 50 Year
  Sex: Male

DRUGS (1)
  1. TARPEYO [Suspect]
     Active Substance: BUDESONIDE
     Indication: IgA nephropathy
     Dosage: 16MG (4MG CAPSULES) ONCE DAILY
     Route: 048
     Dates: start: 20230722

REACTIONS (4)
  - Hyperaesthesia teeth [Unknown]
  - Weight increased [Unknown]
  - Product dose omission issue [Unknown]
  - Musculoskeletal discomfort [Unknown]
